FAERS Safety Report 4728163-9 (Version None)
Quarter: 2005Q3

REPORT INFORMATION
  Report Type: 
  Country: None (occurrence: None)
  Receive Date: 20050727
  Receipt Date: 20050722
  Transmission Date: 20060218
  Serious: No
  Sender: FDA-Public Use
  Company Number: A500725410/PHRM2005FRO1359

PATIENT
  Age: 91 Year
  Sex: Male
  Weight: 80 kg

DRUGS (4)
  1. AK-FLUOR 10% [Suspect]
     Indication: ANGIOGRAM
     Dosage: INTRAVENOUS
     Route: 042
     Dates: start: 20050324, end: 20050324
  2. NICARDIPINE HCL [Concomitant]
  3. RAMIPRIL [Concomitant]
  4. ACEBUTOLOL [Concomitant]

REACTIONS (4)
  - CIRCULATORY COLLAPSE [None]
  - HYPERSENSITIVITY [None]
  - LOSS OF CONSCIOUSNESS [None]
  - PARAESTHESIA [None]
